FAERS Safety Report 7246015-X (Version None)
Quarter: 2011Q1

REPORT INFORMATION
  Report Type: 
  Country: None (occurrence: None)
  Receive Date: 20110126
  Receipt Date: 20110114
  Transmission Date: 20110831
  Serious: Yes (Hospitalization)
  Sender: FDA-Public Use
  Company Number: US-ELI_LILLY_AND_COMPANY-US201101001110

PATIENT
  Age: 65 Year
  Sex: Male

DRUGS (1)
  1. EFFIENT [Suspect]
     Indication: STENT PLACEMENT
     Dosage: 10 MG, UNKNOWN

REACTIONS (3)
  - CARDIAC DISORDER [None]
  - DYSPNOEA [None]
  - ATRIAL FIBRILLATION [None]
